FAERS Safety Report 4862320-6 (Version None)
Quarter: 2005Q4

REPORT INFORMATION
  Report Type: 
  Country: None (occurrence: None)
  Receive Date: 20051221
  Receipt Date: 20051209
  Transmission Date: 20060501
  Serious: Yes (Other)
  Sender: FDA-Public Use
  Company Number: CA-BRISTOL-MYERS SQUIBB COMPANY-13218748

PATIENT
  Age: 84 Year
  Sex: Male

DRUGS (9)
  1. GATIFLOXACIN [Suspect]
     Route: 048
  2. ALLOPURINOL [Concomitant]
     Route: 048
  3. ASPIRIN [Concomitant]
     Route: 048
  4. COSOPT [Concomitant]
     Route: 047
  5. FUROSEMIDE [Concomitant]
     Route: 048
  6. GLYBURIDE [Concomitant]
     Route: 048
  7. NASONEX [Concomitant]
  8. VALSARTAN [Concomitant]
     Route: 048
  9. XALATAN [Concomitant]
     Route: 047

REACTIONS (5)
  - CONVULSION [None]
  - DECREASED APPETITE [None]
  - HYPOGLYCAEMIA [None]
  - LOSS OF CONSCIOUSNESS [None]
  - NAUSEA [None]
